FAERS Safety Report 23204078 (Version 1)
Quarter: 2023Q4

REPORT INFORMATION
  Report Type: Spontaneous
  Country: US (occurrence: US)
  Receive Date: 20231120
  Receipt Date: 20231120
  Transmission Date: 20240110
  Serious: No
  Sender: FDA-Public Use
  Company Number: US-CHIESI-2023CHF05963

PATIENT
  Age: 48 Year
  Sex: Male

DRUGS (1)
  1. ELFABRIO [Suspect]
     Active Substance: PEGUNIGALSIDASE ALFA-IWXJ
     Indication: Product used for unknown indication
     Dosage: UNK
     Route: 042
     Dates: start: 20231031, end: 20231031

REACTIONS (3)
  - Abdominal discomfort [Unknown]
  - Headache [Unknown]
  - Burning sensation [Unknown]

NARRATIVE: CASE EVENT DATE: 20231031
